FAERS Safety Report 7774049-5 (Version None)
Quarter: 2011Q3

REPORT INFORMATION
  Report Type: 
  Country: None (occurrence: None)
  Receive Date: 20110923
  Receipt Date: 20110920
  Transmission Date: 20111222
  Serious: No
  Sender: FDA-Public Use
  Company Number: US-PFIZER INC-2011194147

PATIENT
  Sex: Female
  Weight: 87.075 kg

DRUGS (6)
  1. LIPITOR [Concomitant]
     Indication: BLOOD CHOLESTEROL INCREASED
     Dosage: UNK
  2. CELEBREX [Suspect]
     Indication: ARTHRITIS
     Dosage: 200 MG, 1X/DAY
     Route: 048
     Dates: start: 20110523
  3. CELEBREX [Suspect]
     Indication: OEDEMA PERIPHERAL
  4. ALENDRONATE SODIUM [Concomitant]
     Indication: OSTEOPOROSIS
     Dosage: UNK
  5. PERCOCET [Concomitant]
     Indication: GASTRIC ULCER HAEMORRHAGE
     Dosage: UNK
  6. OMEPRAZOLE [Concomitant]
     Indication: GASTRIC ULCER HAEMORRHAGE
     Dosage: UNK

REACTIONS (2)
  - PARAESTHESIA [None]
  - SLEEP DISORDER [None]
